FAERS Safety Report 6903349-3 (Version None)
Quarter: 2010Q3

REPORT INFORMATION
  Report Type: 
  Country: None (occurrence: None)
  Receive Date: 20100803
  Receipt Date: 20080926
  Transmission Date: 20110219
  Serious: No
  Sender: FDA-Public Use
  Company Number: US-PFIZER INC-2008070797

PATIENT
  Sex: Female
  Weight: 93.2 kg

DRUGS (7)
  1. LYRICA [Suspect]
     Indication: NECK PAIN
     Dates: start: 20080822
  2. LYRICA [Suspect]
     Indication: FIBROMYALGIA
  3. OXYCODONE [Suspect]
  4. KETOROLAC [Concomitant]
  5. TOPROL-XL [Concomitant]
  6. ALBUTEROL [Concomitant]
  7. ADDERALL 10 [Concomitant]

REACTIONS (5)
  - DRUG DOSE OMISSION [None]
  - DRUG INEFFECTIVE [None]
  - PAIN [None]
  - SOMNOLENCE [None]
  - VOMITING [None]
